FAERS Safety Report 8401716-2 (Version None)
Quarter: 2012Q2

REPORT INFORMATION
  Report Type: 
  Country: None (occurrence: None)
  Receive Date: 20120601
  Receipt Date: 20120524
  Transmission Date: 20120825
  Serious: Yes (Hospitalization)
  Sender: FDA-Public Use
  Company Number: US-BAYER-2012-013803

PATIENT
  Age: 25 Year
  Sex: Female
  Weight: 60.317 kg

DRUGS (4)
  1. YAZ [Suspect]
     Indication: ACNE
  2. YASMIN [Suspect]
  3. ENDRINE [EPHEDRINE] [Concomitant]
     Indication: WEIGHT DECREASED
  4. YAZ [Suspect]
     Indication: CONTRACEPTION
     Dates: start: 20060801, end: 20070101

REACTIONS (4)
  - VOMITING [None]
  - MIGRAINE [None]
  - CEREBRAL THROMBOSIS [None]
  - SUPERIOR SAGITTAL SINUS THROMBOSIS [None]
